FAERS Safety Report 15706662 (Version 1)
Quarter: 2018Q4

REPORT INFORMATION
  Report Type: Spontaneous
  Country: HU (occurrence: HU)
  Receive Date: 20181210
  Receipt Date: 20181210
  Transmission Date: 20190205
  Serious: Yes (Hospitalization, Other)
  Sender: FDA-Public Use
  Company Number: HU-MYLANLABS-2018M1091380

PATIENT
  Age: 3 Month
  Sex: Female

DRUGS (8)
  1. MEROPENEM. [Suspect]
     Active Substance: MEROPENEM
     Indication: OTITIS MEDIA
     Dosage: UNK
     Dates: start: 2014
  2. STANDACILLIN [Suspect]
     Active Substance: AMPICILLIN
     Indication: VIRAL INFECTION
     Dosage: UNK
     Dates: start: 2014
  3. TOBRAMYCIN. [Suspect]
     Active Substance: TOBRAMYCIN
     Indication: OTITIS MEDIA
     Dosage: UNK
     Dates: start: 2014
  4. STANDACILLIN [Suspect]
     Active Substance: AMPICILLIN
     Indication: CONJUNCTIVITIS
  5. CIPROFLOXACIN. [Suspect]
     Active Substance: CIPROFLOXACIN
     Indication: OTITIS MEDIA
     Dosage: UNK
     Dates: start: 2014
  6. CLAFORAN [Concomitant]
     Active Substance: CEFOTAXIME SODIUM
     Indication: PRODUCT USED FOR UNKNOWN INDICATION
  7. CEFTAZIDIME. [Concomitant]
     Active Substance: CEFTAZIDIME
     Indication: PRODUCT USED FOR UNKNOWN INDICATION
  8. STANDACILLIN [Suspect]
     Active Substance: AMPICILLIN
     Indication: HEPATOMEGALY

REACTIONS (16)
  - Normocytic anaemia [Unknown]
  - Faeces pale [Unknown]
  - Gallbladder disorder [Unknown]
  - Cardiac murmur [Unknown]
  - Pseudomonas test positive [Unknown]
  - Pulmonary fibrosis [Unknown]
  - Hepatomegaly [Unknown]
  - Diarrhoea [Unknown]
  - Gastroenteritis [Unknown]
  - Dehydration [Recovering/Resolving]
  - Blood alkaline phosphatase increased [Unknown]
  - Underweight [Unknown]
  - Blood bilirubin increased [Unknown]
  - Ovarian cyst [Unknown]
  - Faeces discoloured [Unknown]
  - Sweat test abnormal [Unknown]

NARRATIVE: CASE EVENT DATE: 2014
